FAERS Safety Report 15369043 (Version 1)
Quarter: 2018Q3

REPORT INFORMATION
  Report Type: Report from Study
  Country: JP (occurrence: JP)
  Receive Date: 20180911
  Receipt Date: 20180911
  Transmission Date: 20181010
  Serious: Yes (Other)
  Sender: FDA-Public Use
  Company Number: JP-ACTELION-A-CH2018-172706

PATIENT
  Age: 70 Year
  Sex: Female

DRUGS (8)
  1. ADCIRCA [Concomitant]
     Active Substance: TADALAFIL
  2. BERIZYM [Concomitant]
     Active Substance: CELLULASE\DIASTASE\LIPASE
  3. MAGMITT [Concomitant]
     Active Substance: MAGNESIUM OXIDE
  4. DORNER [Concomitant]
     Active Substance: BERAPROST SODIUM
  5. OPSUMIT [Suspect]
     Active Substance: MACITENTAN
     Indication: PULMONARY ARTERIAL HYPERTENSION
     Dosage: 10 MG, QD
     Route: 048
     Dates: start: 20170518, end: 20170615
  6. UPTRAVI [Concomitant]
     Active Substance: SELEXIPAG
  7. OPSUMIT [Suspect]
     Active Substance: MACITENTAN
     Dosage: 10 MG, QD
     Route: 048
     Dates: start: 20171011
  8. REBAMIPIDE [Concomitant]
     Active Substance: REBAMIPIDE

REACTIONS (9)
  - Skin ulcer [Recovered/Resolved with Sequelae]
  - Concomitant disease aggravated [Recovered/Resolved with Sequelae]
  - Necrosis [Unknown]
  - Finger amputation [Unknown]
  - Gastrooesophageal reflux disease [Not Recovered/Not Resolved]
  - Nausea [Recovered/Resolved]
  - Pain [Not Recovered/Not Resolved]
  - Leg amputation [Unknown]
  - Hypokalaemia [Recovered/Resolved]

NARRATIVE: CASE EVENT DATE: 20170519
